FAERS Safety Report 7371105-0 (Version None)
Quarter: 2011Q1

REPORT INFORMATION
  Report Type: 
  Country: None (occurrence: None)
  Receive Date: 20110324
  Receipt Date: 20101021
  Transmission Date: 20110831
  Serious: Yes (Hospitalization)
  Sender: FDA-Public Use
  Company Number: US-BAYER-201015989NA

PATIENT
  Sex: Female
  Weight: 65 kg

DRUGS (10)
  1. YASMIN [Suspect]
     Indication: PREMENSTRUAL SYNDROME
     Route: 048
     Dates: start: 20050101, end: 20060101
  2. NAPROXEN [Concomitant]
     Dates: start: 20060101, end: 20080101
  3. YAZ [Suspect]
     Indication: PREMENSTRUAL SYNDROME
     Route: 048
  4. MOTRIN [Concomitant]
     Dates: start: 20060101, end: 20080101
  5. HYDROCHLOROTHIAZIDE [Concomitant]
  6. YASMIN [Suspect]
     Indication: CONTRACEPTION
  7. UNCODEABLE ^UNCLASSIFIABLE^ [Concomitant]
  8. YAZ [Suspect]
     Indication: CONTRACEPTION
  9. TOPROL-XL [Concomitant]
  10. UNCODEABLE ^UNCLASSIFIABLE^ [Concomitant]

REACTIONS (5)
  - PULMONARY EMBOLISM [None]
  - OEDEMA PERIPHERAL [None]
  - MENTAL DISORDER [None]
  - PAIN IN EXTREMITY [None]
  - DEEP VEIN THROMBOSIS [None]
